FAERS Safety Report 4814401-0 (Version None)
Quarter: 2005Q4

REPORT INFORMATION
  Report Type: 
  Country: None (occurrence: None)
  Receive Date: 20051028
  Receipt Date: 20050819
  Transmission Date: 20060501
  Serious: No
  Sender: FDA-Public Use
  Company Number: US-GLAXOSMITHKLINE-A0570932A

PATIENT
  Age: 78 Year
  Sex: Male

DRUGS (8)
  1. ADVAIR DISKUS 100/50 [Suspect]
     Indication: DRUG USE FOR UNKNOWN INDICATION
     Dosage: 1PUFF TWICE PER DAY
     Route: 055
     Dates: start: 20050725, end: 20050810
  2. CARDIZEM [Concomitant]
  3. UNKNOWN MEDICATION [Concomitant]
  4. SINGULAIR [Concomitant]
  5. EFFEXOR [Concomitant]
  6. ZOCOR [Concomitant]
  7. LASIX [Concomitant]
  8. DITROPAN XL [Concomitant]

REACTIONS (2)
  - PHARMACEUTICAL PRODUCT COMPLAINT [None]
  - VOMITING [None]
